FAERS Safety Report 10676627 (Version 1)
Quarter: 2014Q4

REPORT INFORMATION
  Report Type: Spontaneous
  Country: US (occurrence: None)
  Receive Date: 20141223
  Receipt Date: 20141223
  Transmission Date: 20150529
  Serious: No
  Sender: FDA-Public Use
  Company Number: None

PATIENT
  Age: 76 Year
  Sex: Female
  Weight: 102.51 kg

DRUGS (1)
  1. SPIRIVA [Suspect]
     Active Substance: TIOTROPIUM BROMIDE MONOHYDRATE
     Indication: CHRONIC OBSTRUCTIVE PULMONARY DISEASE
     Dosage: ONE CAPSULE PER DAY
     Route: 055
     Dates: start: 20141218, end: 20141222

REACTIONS (4)
  - Scab [None]
  - Pain [None]
  - Blister [None]
  - Skin disorder [None]

NARRATIVE: CASE EVENT DATE: 20141218
